FAERS Safety Report 6936400-5 (Version None)
Quarter: 2010Q3

REPORT INFORMATION
  Report Type: 
  Country: None (occurrence: None)
  Receive Date: 20100823
  Receipt Date: 20100819
  Transmission Date: 20110219
  Serious: Yes (Life-Threatening)
  Sender: FDA-Public Use
  Company Number: US-B.I. PHARMACEUTICALS,INC./RIDGEFIELD-2010-BP-09410BP

PATIENT
  Sex: Male

DRUGS (1)
  1. VIRAMUNE [Suspect]

REACTIONS (3)
  - ACUTE HEPATIC FAILURE [None]
  - LIVER FUNCTION TEST ABNORMAL [None]
  - RASH [None]
